FAERS Safety Report 7896142-9 (Version None)
Quarter: 2011Q4

REPORT INFORMATION
  Report Type: 
  Country: None (occurrence: None)
  Receive Date: 20111106
  Receipt Date: 20110906
  Transmission Date: 20120403
  Serious: No
  Sender: FDA-Public Use
  Company Number: US-AMGEN-USASP2011045657

PATIENT
  Age: 46 Year
  Sex: Female

DRUGS (8)
  1. ENBREL [Suspect]
     Indication: PRODUCT USED FOR UNKNOWN INDICATION
     Dosage: UNK
  2. HUMIRA [Concomitant]
     Indication: RHEUMATOID ARTHRITIS
     Dosage: 40 MG, 1 IN 2 WEEKS
     Route: 058
     Dates: start: 20110201
  3. ERGOCALCIFEROL [Concomitant]
     Dosage: 50000 UNIT, 1 IN 1 WEEK
  4. GABAPENTIN [Concomitant]
     Indication: PAIN
     Dosage: 300 MG, TID
  5. ARMODAFINIL [Concomitant]
     Indication: SLEEP APNOEA SYNDROME
     Dosage: 150 MG, 1 IN 1 DAY
  6. TRAMADOL HCL [Concomitant]
     Indication: PAIN
     Dosage: 1 TABLET EVERY FOUR HOURS OR AS NEEDED
  7. MORPHINE [Concomitant]
     Indication: PAIN
     Dosage: 30 MG, TID
  8. ALPRAZOLAM [Concomitant]
     Indication: SLEEP DISORDER
     Dosage: 0.25 MG, AS REQUIRED

REACTIONS (8)
  - INJECTION SITE SWELLING [None]
  - SKIN DISCOLOURATION [None]
  - PAIN [None]
  - INJECTION SITE ERYTHEMA [None]
  - ASTHENIA [None]
  - INJECTION SITE PRURITUS [None]
  - INJECTION SITE WARMTH [None]
  - DRUG INEFFECTIVE [None]
